FAERS Safety Report 8915373 (Version 1)
Quarter: 2012Q4

REPORT INFORMATION
  Report Type: 
  Country: IT (occurrence: IT)
  Receive Date: 20121119
  Receipt Date: 20121119
  Transmission Date: 20130627
  Serious: Yes (Life-Threatening)
  Sender: FDA-Public Use
  Company Number: IT-ASTRAZENECA-2012SE86617

PATIENT
  Age: 18295 Day
  Sex: Female

DRUGS (3)
  1. SEROQUEL [Suspect]
     Route: 048
     Dates: start: 20121110, end: 20121110
  2. LYRICA [Suspect]
     Route: 048
     Dates: start: 20121110, end: 20121110
  3. EN [Suspect]
     Dosage: 1 MG/ML, 20 ML
     Route: 048
     Dates: start: 20121110, end: 20121110

REACTIONS (3)
  - Intentional self-injury [Recovering/Resolving]
  - Coma [Recovering/Resolving]
  - Respiratory failure [Recovering/Resolving]
